FAERS Safety Report 24966638 (Version 2)
Quarter: 2025Q1

REPORT INFORMATION
  Report Type: Spontaneous
  Country: IL (occurrence: IL)
  Receive Date: 20250213
  Receipt Date: 20250305
  Transmission Date: 20250409
  Serious: Yes (Other)
  Sender: TEVA
  Company Number: IL-TEVA-VS-3297467

PATIENT
  Age: 6 Year
  Sex: Female

DRUGS (1)
  1. AMOXICILLIN [Suspect]
     Active Substance: AMOXICILLIN
     Indication: Tonsillitis
     Route: 065
     Dates: start: 20250101, end: 20250107

REACTIONS (2)
  - Hallucination, visual [Recovered/Resolved]
  - Sleep terror [Recovered/Resolved]

NARRATIVE: CASE EVENT DATE: 20250106
